FAERS Safety Report 9471844 (Version 1)
Quarter: 2013Q3

REPORT INFORMATION
  Report Type: Spontaneous
  Country: US (occurrence: US)
  Receive Date: 20130822
  Receipt Date: 20130822
  Transmission Date: 20140515
  Serious: No
  Sender: FDA-Public Use
  Company Number: US-009507513-1308USA009149

PATIENT
  Sex: Male

DRUGS (3)
  1. HEXADROL TABLETS [Suspect]
     Route: 064
  2. ROMIPLOSTIM [Suspect]
     Dosage: 3 MICROGRAMS/KG/WK
     Route: 064
  3. GLOBULIN, IMMUNE [Concomitant]
     Route: 064

REACTIONS (2)
  - Adrenal insufficiency [Recovered/Resolved]
  - Maternal exposure timing unspecified [Recovered/Resolved]
